FAERS Safety Report 5921191-7 (Version None)
Quarter: 2008Q4

REPORT INFORMATION
  Report Type: 
  Country: None (occurrence: None)
  Receive Date: 20081016
  Receipt Date: 20081009
  Transmission Date: 20090506
  Serious: No
  Sender: FDA-Public Use
  Company Number: US-B.I. PHARMACEUTICALS,INC./RIDGEFIELD-2008-BP-14215BP

PATIENT
  Sex: Female

DRUGS (12)
  1. ATROVENT HFA [Suspect]
     Indication: CHRONIC OBSTRUCTIVE PULMONARY DISEASE
     Route: 055
     Dates: start: 20080625, end: 20080908
  2. ATROVENT HFA [Suspect]
     Indication: RHINORRHOEA
  3. ATROVENT HFA [Suspect]
     Indication: WHEEZING
  4. ATROVENT HFA [Suspect]
     Indication: COUGH
  5. ALLEGRA [Concomitant]
     Dates: start: 20080730, end: 20080820
  6. ATENOLOL [Concomitant]
     Indication: HYPERTENSION
     Dosage: 25MG
  7. LISINOPRIL [Concomitant]
     Indication: HYPERTENSION
     Dosage: 5MG
  8. ZOCOR [Concomitant]
     Indication: BLOOD CHOLESTEROL INCREASED
     Dosage: 20MG
  9. FOSAMAX [Concomitant]
  10. MIRALAX [Concomitant]
     Indication: LAXATIVE SUPPORTIVE CARE
  11. GLUCOSAMINE AND CHONDROITIN [Concomitant]
     Indication: SUPPLEMENTATION THERAPY
  12. EQUATE VISION FORMULA [Concomitant]
     Indication: SUPPLEMENTATION THERAPY

REACTIONS (6)
  - HEAT RASH [None]
  - HYPERHIDROSIS [None]
  - PRURITUS [None]
  - RASH [None]
  - RASH PRURITIC [None]
  - URTICARIA [None]
